FAERS Safety Report 25000160 (Version 2)
Quarter: 2025Q1

REPORT INFORMATION
  Report Type: Spontaneous
  Country: US (occurrence: US)
  Receive Date: 20250222
  Receipt Date: 20250326
  Transmission Date: 20250409
  Serious: No
  Sender: SANOFI AVENTIS
  Company Number: US-SA-2025SA051118

PATIENT
  Age: 43 Year
  Sex: Female
  Weight: 48.18 kg

DRUGS (3)
  1. DUPIXENT [Suspect]
     Active Substance: DUPILUMAB
     Indication: Dermatitis allergic
     Dosage: 300 MG, QOW
     Route: 058
  2. DUPIXENT [Suspect]
     Active Substance: DUPILUMAB
     Indication: Dermatitis atopic
  3. IMPLANON [Concomitant]
     Active Substance: ETONOGESTREL
     Route: 059

REACTIONS (2)
  - Rash [Unknown]
  - Dermatitis atopic [Unknown]
